FAERS Safety Report 8009000-6 (Version None)
Quarter: 2011Q4

REPORT INFORMATION
  Report Type: 
  Country: None (occurrence: None)
  Receive Date: 20111227
  Receipt Date: 20111222
  Transmission Date: 20120403
  Serious: No
  Sender: FDA-Public Use
  Company Number: US-PFIZER INC-2011311801

PATIENT
  Sex: Male
  Weight: 81.633 kg

DRUGS (2)
  1. XANAX [Concomitant]
     Dosage: 1.5 MG, 3X/DAY
  2. PRISTIQ [Suspect]
     Dosage: 50 MG, DAILY
     Route: 048
     Dates: start: 20111101, end: 20111219

REACTIONS (10)
  - FATIGUE [None]
  - SOMNOLENCE [None]
  - APATHY [None]
  - DECREASED APPETITE [None]
  - MALAISE [None]
  - ANXIETY [None]
  - FEELING ABNORMAL [None]
  - SLUGGISHNESS [None]
  - DIZZINESS [None]
  - BRONCHITIS [None]
